FAERS Safety Report 6804508-0 (Version None)
Quarter: 2010Q2

REPORT INFORMATION
  Report Type: 
  Country: None (occurrence: None)
  Receive Date: 20100628
  Receipt Date: 20061212
  Transmission Date: 20101027
  Serious: Yes (Other)
  Sender: FDA-Public Use
  Company Number: US-PFIZER INC-2007022321

PATIENT

DRUGS (1)
  1. SUTENT [Suspect]

REACTIONS (1)
  - NEUTROPENIA [None]
